FAERS Safety Report 4284532-5 (Version None)
Quarter: 2004Q1

REPORT INFORMATION
  Report Type: 
  Country: None (occurrence: None)
  Receive Date: 20040130
  Receipt Date: 20040119
  Transmission Date: 20041129
  Serious: Yes (Hospitalization)
  Sender: FDA-Public Use
  Company Number: FR_040103385

PATIENT
  Age: 52 Year
  Sex: Male

DRUGS (6)
  1. PROZAC [Suspect]
     Indication: DEPRESSION
     Dates: end: 20031010
  2. SEROPRAM (CITALOPRAM HYDROBROMIDE) [Concomitant]
  3. CO-RENITEC [Concomitant]
  4. OMIX (TAMSULOSIN HYDROCHLORIDE) [Concomitant]
  5. TENORMIN [Concomitant]
  6. AMARYL [Concomitant]

REACTIONS (3)
  - DRUG INTERACTION [None]
  - OVERDOSE [None]
  - SEROTONIN SYNDROME [None]
